FAERS Safety Report 4963893-5 (Version None)
Quarter: 2006Q1

REPORT INFORMATION
  Report Type: 
  Country: None (occurrence: None)
  Receive Date: 20060330
  Receipt Date: 20060317
  Transmission Date: 20060701
  Serious: Yes (Hospitalization)
  Sender: FDA-Public Use
  Company Number: 8015681

PATIENT
  Age: 20 Year
  Sex: Male

DRUGS (4)
  1. KEPPRA [Suspect]
     Indication: CONVULSION
     Dosage: 1000 MG 2/D
     Dates: start: 20050101, end: 20060228
  2. KEPPRA [Suspect]
     Indication: CONVULSION
     Dosage: 1500 MG 2/D
     Dates: start: 20060301
  3. DEPAKOTE [Concomitant]
  4. VALPROIC ACID [Concomitant]

REACTIONS (4)
  - CONVULSION [None]
  - PNEUMONIA BACTERIAL [None]
  - RESPIRATORY DISORDER [None]
  - URINARY TRACT INFECTION [None]
